FAERS Safety Report 23759974 (Version 1)
Quarter: 2024Q2

REPORT INFORMATION
  Report Type: Spontaneous
  Country: HU (occurrence: HU)
  Receive Date: 20240419
  Receipt Date: 20240419
  Transmission Date: 20240716
  Serious: Yes (Hospitalization, Other)
  Sender: FDA-Public Use
  Company Number: HU-SUN PHARMACEUTICAL INDUSTRIES LTD-2024R1-441815

PATIENT
  Age: 70 Year
  Sex: Female

DRUGS (4)
  1. ALPRAZOLAM [Suspect]
     Active Substance: ALPRAZOLAM
     Indication: Persistent depressive disorder
     Dosage: 0.25 MILLIGRAM, DAILY
     Route: 065
  2. ALPRAZOLAM [Suspect]
     Active Substance: ALPRAZOLAM
     Indication: Anxiety
     Dosage: UNK (30 TABLETS OF 0.5 MG)
     Route: 048
  3. SERTRALINE [Concomitant]
     Active Substance: SERTRALINE HYDROCHLORIDE
     Indication: Persistent depressive disorder
     Dosage: 50 MILLIGRAM, DAILY
     Route: 065
  4. SERTRALINE [Concomitant]
     Active Substance: SERTRALINE HYDROCHLORIDE
     Indication: Anxiety

REACTIONS (7)
  - Suicide attempt [Unknown]
  - Toxicity to various agents [Unknown]
  - Cognitive disorder [Recovering/Resolving]
  - Delusional disorder, erotomanic type [Recovering/Resolving]
  - Mood disorder due to a general medical condition [Recovering/Resolving]
  - Cerebrovascular disorder [Recovering/Resolving]
  - Overdose [Unknown]
